FAERS Safety Report 8667885 (Version 2)
Quarter: 2012Q4

REPORT INFORMATION
  Report Type: 
  Country: US (occurrence: US)
  Receive Date: 20120717
  Receipt Date: 20120914
  Transmission Date: 20130627
  Serious: Yes (Hospitalization, Other)
  Sender: FDA-Public Use
  Company Number: US-BAYER-2012-070413

PATIENT
  Age: 25 Year
  Sex: Female
  Weight: 54.42 kg

DRUGS (4)
  1. MIRENA [Suspect]
     Indication: MENORRHAGIA
     Dosage: 20 mcg/24hr, CONT
     Route: 015
     Dates: start: 20120413, end: 20120619
  2. METOPROLOL [Concomitant]
     Indication: HYPERTENSION
     Dosage: 50 mg, QD
  3. ZOLMITRIPTAN [Concomitant]
     Indication: MIGRAINE
     Dosage: 2.5 mg, PRN
  4. FE [Concomitant]
     Indication: ANAEMIA
     Dosage: 325 mg, BID

REACTIONS (13)
  - Device dislocation [Recovered/Resolved]
  - Abdominal pain [None]
  - Vaginal haemorrhage [None]
  - Back pain [None]
  - Nausea [None]
  - Vomiting [None]
  - Dizziness [Recovering/Resolving]
  - Pyrexia [None]
  - Pelvic pain [None]
  - Pelvic inflammatory disease [None]
  - Metrorrhagia [None]
  - Headache [None]
  - Abdominal pain lower [None]
